FAERS Safety Report 8988202 (Version 1)
Quarter: 2012Q4

REPORT INFORMATION
  Report Type: 
  Country: US (occurrence: US)
  Receive Date: 20121227
  Receipt Date: 20121227
  Transmission Date: 20130627
  Serious: Yes (Other)
  Sender: FDA-Public Use
  Company Number: US-ROCHE-1174248

PATIENT
  Sex: Male
  Weight: 86.26 kg

DRUGS (2)
  1. ACCUTANE [Suspect]
     Indication: ACNE
     Dosage: dose increased to 40 mg 3 time daily for last 6 weeks
     Route: 065
     Dates: start: 19970812
  2. ACCUTANE [Suspect]
     Route: 065
     Dates: start: 1999

REACTIONS (4)
  - Inflammatory bowel disease [Unknown]
  - Colitis ulcerative [Unknown]
  - Gastroenteritis [Unknown]
  - Appendicitis [Unknown]
